FAERS Safety Report 7795371-2 (Version None)
Quarter: 2011Q4

REPORT INFORMATION
  Report Type: 
  Country: None (occurrence: None)
  Receive Date: 20111004
  Receipt Date: 20110922
  Transmission Date: 20120403
  Serious: Yes (Hospitalization, Other)
  Sender: FDA-Public Use
  Company Number: IL-ELI_LILLY_AND_COMPANY-IL201109003117

PATIENT
  Age: 81 Year
  Sex: Female

DRUGS (11)
  1. LEVOTHYROXINE SODIUM [Concomitant]
     Indication: HYPOTHYROIDISM
  2. ESCITALOPRAM [Concomitant]
     Indication: DEPRESSION
  3. MICROPIRIN [Concomitant]
  4. EXELON [Concomitant]
     Indication: DEMENTIA ALZHEIMER'S TYPE
  5. FORTEO [Suspect]
     Dosage: 20 UG, QD
     Dates: start: 20110901
  6. CALCIUM W/VITAMIN D                /00188401/ [Concomitant]
     Indication: OSTEOPOROSIS
  7. FORTEO [Suspect]
     Indication: OSTEOPOROSIS
     Dosage: 20 UG, QD
     Dates: start: 20100715, end: 20110901
  8. LAMICTAL [Concomitant]
     Indication: BALANCE DISORDER
  9. RAMIPRIL [Concomitant]
     Indication: HYPERTENSION
  10. PRILOSEC [Concomitant]
  11. AMLODIPINE [Concomitant]
     Indication: HYPERTENSION

REACTIONS (4)
  - FALL [None]
  - HIP FRACTURE [None]
  - BONE FRAGMENTATION [None]
  - BALANCE DISORDER [None]
